FAERS Safety Report 25919004 (Version 1)
Quarter: 2025Q4

REPORT INFORMATION
  Report Type: Spontaneous
  Country: US (occurrence: None)
  Receive Date: 20251011
  Receipt Date: 20251011
  Transmission Date: 20260118
  Serious: Yes (Disabling)
  Sender: FDA-CTU
  Company Number: None

PATIENT
  Age: 78 Year
  Sex: Female

DRUGS (1)
  1. SIMPONI [Suspect]
     Active Substance: GOLIMUMAB
     Indication: Ankylosing spondylitis
     Dosage: 50MG MONTHLY SUBCUTANEOUS?
     Route: 058

REACTIONS (5)
  - Spinal stenosis [None]
  - Urinary tract infection [None]
  - Back pain [None]
  - Pain in extremity [None]
  - Spinal disorder [None]
